FAERS Safety Report 23426411 (Version 3)
Quarter: 2024Q2

REPORT INFORMATION
  Report Type: Spontaneous
  Country: IT (occurrence: IT)
  Receive Date: 20240122
  Receipt Date: 20240627
  Transmission Date: 20240716
  Serious: Yes (Other)
  Sender: FDA-Public Use
  Company Number: IT-BIOGEN-2024BI01246396

PATIENT
  Sex: Female
  Weight: 45 kg

DRUGS (2)
  1. TYSABRI [Suspect]
     Active Substance: NATALIZUMAB
     Indication: Multiple sclerosis
     Dosage: DISCONTINUED BETWEEN THE END OF 2020 AND 2021
     Route: 050
     Dates: start: 201701
  2. TYSABRI [Suspect]
     Active Substance: NATALIZUMAB
     Dosage: RESTARTED TYSABRI IN EXTENDED INTERVAL DOSING (EID)
     Route: 050
     Dates: end: 20231109

REACTIONS (1)
  - Clear cell renal cell carcinoma [Unknown]
